FAERS Safety Report 5862085-5 (Version None)
Quarter: 2008Q3

REPORT INFORMATION
  Report Type: 
  Country: None (occurrence: None)
  Receive Date: 20080827
  Receipt Date: 20080827
  Transmission Date: 20090109
  Serious: Yes (Hospitalization)
  Sender: FDA-Public Use
  Company Number: None

PATIENT
  Age: 71 Year
  Sex: Male
  Weight: 86.1834 kg

DRUGS (1)
  1. LIPITOR [Suspect]
     Dosage: 80 MG DAILY MOUTH
     Route: 048
     Dates: start: 19950101, end: 20080101

REACTIONS (5)
  - APHASIA [None]
  - BALANCE DISORDER [None]
  - FACIAL BONES FRACTURE [None]
  - FALL [None]
  - ROTATOR CUFF SYNDROME [None]
